FAERS Safety Report 7365065-6 (Version None)
Quarter: 2011Q1

REPORT INFORMATION
  Report Type: 
  Country: None (occurrence: None)
  Receive Date: 20110321
  Receipt Date: 20110307
  Transmission Date: 20110831
  Serious: Yes (Other)
  Sender: FDA-Public Use
  Company Number: DE-WATSON-2011-03434

PATIENT
  Sex: Female

DRUGS (1)
  1. TRELSTAR UNKNOWN STRENGTH (WATSON LABORATORIES) [Suspect]
     Indication: IN VITRO FERTILISATION
     Dosage: UNK

REACTIONS (1)
  - OVARIAN HYPERSTIMULATION SYNDROME [None]
